FAERS Safety Report 5890034-2 (Version None)
Quarter: 2008Q3

REPORT INFORMATION
  Report Type: 
  Country: None (occurrence: None)
  Receive Date: 20080919
  Receipt Date: 20080908
  Transmission Date: 20090109
  Serious: Yes (Other)
  Sender: FDA-Public Use
  Company Number: US-TYCO HEALTHCARE/MALLINCKRODT-T200801494

PATIENT

DRUGS (2)
  1. OPTIMARK [Suspect]
     Indication: SCAN
     Dosage: UNK, UNK
  2. MAGNEVIST [Suspect]
     Indication: SCAN

REACTIONS (1)
  - NEPHROGENIC SYSTEMIC FIBROSIS [None]
